FAERS Safety Report 6588124-4 (Version None)
Quarter: 2010Q1

REPORT INFORMATION
  Report Type: 
  Country: None (occurrence: None)
  Receive Date: 20100218
  Receipt Date: 20100212
  Transmission Date: 20100710
  Serious: Yes (Hospitalization)
  Sender: FDA-Public Use
  Company Number: DE-SANOFI-AVENTIS-2009SA008615

PATIENT
  Age: 63 Year
  Sex: Female
  Weight: 71 kg

DRUGS (3)
  1. DOCETAXEL [Suspect]
     Indication: BREAST CANCER
     Route: 041
     Dates: start: 20091105, end: 20091105
  2. DOCETAXEL [Suspect]
     Route: 041
     Dates: start: 20091126, end: 20091126
  3. FILGRASTIM [Suspect]
     Route: 042
     Dates: start: 20091130, end: 20091204

REACTIONS (4)
  - ALVEOLITIS [None]
  - COUGH [None]
  - DYSPNOEA [None]
  - PYREXIA [None]
